FAERS Safety Report 5735244-X (Version None)
Quarter: 2008Q2

REPORT INFORMATION
  Report Type: 
  Country: None (occurrence: None)
  Receive Date: 20080508
  Receipt Date: 20080508
  Transmission Date: 20081010
  Serious: Yes (Other)
  Sender: FDA-Public Use
  Company Number: None

PATIENT
  Age: 39 Year
  Sex: Male
  Weight: 104.3273 kg

DRUGS (3)
  1. CREST PRO HEALTH NIGHT CREST [Suspect]
     Indication: HYPOGEUSIA
     Dosage: SINGLE CAP FULL USED 1 TIME PO
     Route: 048
  2. CREST PRO HEALTH NIGHT CREST [Suspect]
     Indication: TONGUE BLISTERING
     Dosage: SINGLE CAP FULL USED 1 TIME PO
     Route: 048
  3. CREST PRO HEALTH DAYS CREST [Suspect]

REACTIONS (4)
  - AGEUSIA [None]
  - ORAL DISORDER [None]
  - SWOLLEN TONGUE [None]
  - TONGUE BLISTERING [None]
